FAERS Safety Report 15775730 (Version 1)
Quarter: 2018Q4

REPORT INFORMATION
  Report Type: Spontaneous
  Country: JP (occurrence: JP)
  Receive Date: 20181231
  Receipt Date: 20181231
  Transmission Date: 20190205
  Serious: Yes (Hospitalization)
  Sender: FDA-Public Use
  Company Number: JP-TEVA-2018-JP-007184J

PATIENT
  Age: 28 Year
  Sex: Female

DRUGS (4)
  1. CERCINE [Suspect]
     Active Substance: DIAZEPAM
     Indication: DEPRESSION
     Route: 065
  2. SULPIRIDE TABLET 200MG ^TYK^ [Suspect]
     Active Substance: SULPIRIDE
     Indication: DEPRESSION
     Route: 065
  3. EFFEXOR XR [Suspect]
     Active Substance: VENLAFAXINE HYDROCHLORIDE
     Indication: DEPRESSION
     Dosage: 37.5 MILLIGRAM DAILY;
     Route: 065
  4. EFFEXOR XR [Suspect]
     Active Substance: VENLAFAXINE HYDROCHLORIDE
     Dosage: 75 MILLIGRAM DAILY;
     Route: 065

REACTIONS (3)
  - Vomiting [Recovering/Resolving]
  - Galactorrhoea [Recovered/Resolved]
  - Nausea [Recovering/Resolving]
